FAERS Safety Report 10267589 (Version 1)
Quarter: 2014Q2

REPORT INFORMATION
  Report Type: Spontaneous
  Country: US (occurrence: US)
  Receive Date: 20140630
  Receipt Date: 20140630
  Transmission Date: 20141212
  Serious: No
  Sender: FDA-Public Use
  Company Number: US-PFIZER INC-2014180236

PATIENT
  Age: 60 Year
  Sex: Male

DRUGS (2)
  1. CHANTIX [Suspect]
     Indication: SMOKING CESSATION THERAPY
     Dosage: UNK
  2. PROVENTIL [Concomitant]
     Indication: DYSPNOEA
     Dosage: TWO PUFFS, EVERY SIX HOURS

REACTIONS (2)
  - Nausea [Unknown]
  - Hyperhidrosis [Unknown]
